FAERS Safety Report 6805636-6 (Version None)
Quarter: 2010Q2

REPORT INFORMATION
  Report Type: 
  Country: None (occurrence: None)
  Receive Date: 20100628
  Receipt Date: 20080226
  Transmission Date: 20101027
  Serious: No
  Sender: FDA-Public Use
  Company Number: US-PFIZER INC-2008018950

PATIENT
  Sex: Male
  Weight: 86.3 kg

DRUGS (3)
  1. REVATIO [Suspect]
     Indication: PULMONARY HYPERTENSION
     Dates: start: 20060101
  2. WARFARIN [Concomitant]
     Indication: PULMONARY HYPERTENSION
  3. TRACLEER [Concomitant]
     Indication: PULMONARY HYPERTENSION
     Route: 055
     Dates: start: 20030101

REACTIONS (4)
  - HYPERSENSITIVITY [None]
  - NASAL OEDEMA [None]
  - SNEEZING [None]
  - UPPER AIRWAY OBSTRUCTION [None]
